FAERS Safety Report 8269832-6 (Version None)
Quarter: 2012Q2

REPORT INFORMATION
  Report Type: 
  Country: None (occurrence: None)
  Receive Date: 20120405
  Receipt Date: 20120326
  Transmission Date: 20120825
  Serious: Yes (Other)
  Sender: FDA-Public Use
  Company Number: JPI-P-020163

PATIENT
  Age: 45 Year
  Sex: Female
  Weight: 93.8946 kg

DRUGS (11)
  1. BUPROPION HCL [Concomitant]
  2. XYREM [Suspect]
     Indication: CATAPLEXY
     Dosage: ORAL ; 9 GM (4.5. GM,2 IN 1 D),ORAL
     Route: 048
     Dates: start: 20030702
  3. ZOLPIDEM TARTRATE [Concomitant]
  4. DOXEPIN HCL [Concomitant]
  5. TRAMADOL HCL [Concomitant]
  6. ESOMEPRAZOLE MAGNESIUM [Concomitant]
  7. CLONAZEPAM [Concomitant]
  8. AMPHETAMINE, DEXTROAMPHETAMINE MIXED SALTS [Concomitant]
  9. PROPRANOLOL HYDROCHLORIDE [Concomitant]
  10. PENTOSAN POLYSULFATE SODIUM [Concomitant]
  11. ACETYLSALICYLIC ACID SRT [Concomitant]

REACTIONS (6)
  - RESTLESS LEGS SYNDROME [None]
  - SINUSITIS BACTERIAL [None]
  - INSOMNIA [None]
  - FEELING ABNORMAL [None]
  - MASTOCYTOSIS [None]
  - STAPHYLOCOCCAL INFECTION [None]
